FAERS Safety Report 8116476-2 (Version None)
Quarter: 2012Q1

REPORT INFORMATION
  Report Type: 
  Country: None (occurrence: None)
  Receive Date: 20120206
  Receipt Date: 20120127
  Transmission Date: 20120608
  Serious: Yes (Hospitalization, Other)
  Sender: FDA-Public Use
  Company Number: US-NOVOPROD-339929

PATIENT
  Age: 6 Year
  Sex: Female
  Weight: 17 kg

DRUGS (5)
  1. POLY-VI-FLOR                       /00140801/ [Concomitant]
     Indication: PRODUCT USED FOR UNKNOWN INDICATION
     Dosage: UNK
  2. VITAMIN C                          /00008001/ [Concomitant]
     Indication: VITAMIN SUPPLEMENTATION
     Dosage: UNK
  3. LEVOTHYROXINE SODIUM [Concomitant]
     Indication: THYROID THERAPY
     Dosage: UNK
     Dates: start: 20090201
  4. NORDITROPIN FLEXPRO [Suspect]
     Indication: GROWTH HORMONE DEFICIENCY
     Dosage: 0.7 MG, QD
     Route: 058
     Dates: start: 20110101, end: 20110920
  5. TUMS                               /00193601/ [Concomitant]
     Indication: PRODUCT USED FOR UNKNOWN INDICATION
     Dosage: UNK

REACTIONS (2)
  - BRAIN NEOPLASM [None]
  - CONDITION AGGRAVATED [None]
